FAERS Safety Report 5676188-1 (Version None)
Quarter: 2008Q1

REPORT INFORMATION
  Report Type: 
  Country: None (occurrence: None)
  Receive Date: 20080321
  Receipt Date: 20080310
  Transmission Date: 20080703
  Serious: Yes (Death, Hospitalization)
  Sender: FDA-Public Use
  Company Number: JP-AMGEN-US254983

PATIENT
  Sex: Male
  Weight: 72 kg

DRUGS (15)
  1. ENBREL [Suspect]
     Indication: RHEUMATOID ARTHRITIS
     Route: 058
     Dates: start: 20070205, end: 20070809
  2. OPALMON [Suspect]
     Indication: DRUG USE FOR UNKNOWN INDICATION
     Dosage: 5 UG; UNSPECIFIED FREQUENCY
     Route: 048
     Dates: start: 20070531, end: 20070711
  3. AZULFIDINE EN-TABS [Suspect]
     Indication: RHEUMATOID ARTHRITIS
     Dosage: 500 MG; UNSPECIFIED FREQUENCY
     Route: 048
     Dates: start: 20070802, end: 20070808
  4. BUCILLAMINE [Suspect]
     Indication: DRUG USE FOR UNKNOWN INDICATION
     Route: 065
  5. FOLIAMIN [Concomitant]
     Dosage: UNSPECIFIED
     Route: 065
     Dates: start: 20070119, end: 20070321
  6. PREDNISONE [Concomitant]
     Indication: RHEUMATOID ARTHRITIS
     Dosage: 15 MG; UNSPECIFIED FREQUENCY
     Route: 065
     Dates: start: 20030101
  7. PREDNISONE [Concomitant]
     Route: 048
     Dates: start: 20070119
  8. SELBEX [Concomitant]
     Route: 065
  9. ISCOTIN [Concomitant]
     Dosage: 100MG; UNSPECIFIED FREQUENCY
     Route: 065
     Dates: start: 20070205, end: 20070321
  10. TIEKAPTO [Concomitant]
     Dosage: 200 MG; UNSPECIFIED FREQUENCY
     Route: 065
     Dates: start: 20070802, end: 20070826
  11. LOXOPROFEN [Concomitant]
     Route: 065
  12. ETODOLAC [Concomitant]
     Indication: RHEUMATOID ARTHRITIS
     Dosage: 200 MG, FREQUENCY UNSPECIFIED
     Route: 048
     Dates: start: 20070802, end: 20070808
  13. PROCYLIN [Concomitant]
     Indication: LUMBAR SPINAL STENOSIS
     Dosage: 20 UG EVERY
     Route: 048
     Dates: start: 20070614, end: 20070617
  14. METHOTREXATE [Concomitant]
     Indication: RHEUMATOID ARTHRITIS
     Dosage: UNSPECIFIED
     Route: 048
     Dates: start: 20070119, end: 20070321
  15. PYDOXAL [Concomitant]
     Dosage: 10 MG; UNSPECIFIED FREQUENCY
     Route: 065
     Dates: start: 20070205, end: 20070321

REACTIONS (3)
  - DERMATITIS PSORIASIFORM [None]
  - GASTROINTESTINAL PERFORATION [None]
  - PERITONITIS [None]
